FAERS Safety Report 16781535 (Version 3)
Quarter: 2019Q4

REPORT INFORMATION
  Report Type: Spontaneous
  Country: DE (occurrence: DE)
  Receive Date: 20190906
  Receipt Date: 20191106
  Transmission Date: 20200122
  Serious: Yes (Other)
  Sender: FDA-Public Use
  Company Number: DE-PFIZER INC-2019381992

PATIENT
  Age: 4 Month
  Sex: Male

DRUGS (6)
  1. VIGANTOLETTEN [Concomitant]
     Active Substance: CHOLECALCIFEROL
     Dosage: 1500 IU, UNK
     Dates: start: 20190422
  2. NEO RECORMON [Concomitant]
     Active Substance: ERYTHROPOIETIN
     Dosage: 500 IU, UNK
  3. EUTHYROX [Concomitant]
     Active Substance: LEVOTHYROXINE SODIUM
     Dosage: 12.5 MG, UNK
     Dates: start: 20190422
  4. URSOFALK [Concomitant]
     Active Substance: URSODIOL
     Dosage: 35 MG, UNK
     Dates: start: 20190422
  5. FERRO SANOL [Concomitant]
     Active Substance: FERROUS GLYCINE SULFATE
     Dosage: 5 DF, 2X/DAY
  6. DIFLUCAN [Suspect]
     Active Substance: FLUCONAZOLE
     Dosage: 5 MG, 1X/DAY
     Route: 048
     Dates: start: 20190422, end: 20190910

REACTIONS (4)
  - Gamma-glutamyltransferase increased [Unknown]
  - Alanine aminotransferase increased [Unknown]
  - Aspartate aminotransferase increased [Unknown]
  - Liver function test increased [Unknown]
